FAERS Safety Report 12466676 (Version 3)
Quarter: 2016Q3

REPORT INFORMATION
  Report Type: Report from Study
  Country: US (occurrence: US)
  Receive Date: 20160615
  Receipt Date: 20160706
  Transmission Date: 20161109
  Serious: Yes (Other)
  Sender: FDA-Public Use
  Company Number: US-BIOGEN-2016BI00245775

PATIENT
  Sex: Female

DRUGS (1)
  1. AVONEX [Suspect]
     Active Substance: INTERFERON BETA-1A
     Indication: MULTIPLE SCLEROSIS
     Route: 065
     Dates: start: 20010627

REACTIONS (10)
  - Venous injury [Not Recovered/Not Resolved]
  - Complication associated with device [Unknown]
  - Injection site pain [Unknown]
  - Paraesthesia [Unknown]
  - Memory impairment [Unknown]
  - Injection site haemorrhage [Unknown]
  - Hypoaesthesia [Unknown]
  - Injection site reaction [Unknown]
  - Arthritis [Not Recovered/Not Resolved]
  - Pain in extremity [Not Recovered/Not Resolved]

NARRATIVE: CASE EVENT DATE: 2011
